FAERS Safety Report 13781687 (Version 1)
Quarter: 2017Q3

REPORT INFORMATION
  Report Type: Spontaneous
  Country: CA (occurrence: CA)
  Receive Date: 20170724
  Receipt Date: 20170724
  Transmission Date: 20171127
  Serious: Yes (Other)
  Sender: FDA-Public Use
  Company Number: CA-PFIZER INC-3000653

PATIENT
  Sex: Female

DRUGS (1)
  1. DOCETAXEL HOSPIRA [Suspect]
     Active Substance: DOCETAXEL
     Indication: PRODUCT USED FOR UNKNOWN INDICATION
     Dosage: UNK, CYCLIC
     Route: 041

REACTIONS (6)
  - Chest pain [Unknown]
  - Muscle spasms [Unknown]
  - Flushing [Unknown]
  - Anxiety [Unknown]
  - Nausea [Unknown]
  - Dyspnoea [Unknown]

NARRATIVE: CASE EVENT DATE: 20150827
